FAERS Safety Report 5797089-4 (Version None)
Quarter: 2008Q3

REPORT INFORMATION
  Report Type: 
  Country: None (occurrence: None)
  Receive Date: 20080701
  Receipt Date: 20080627
  Transmission Date: 20090109
  Serious: Yes (Other)
  Sender: FDA-Public Use
  Company Number: US-WATSON-2008-03906

PATIENT
  Sex: Male

DRUGS (27)
  1. NORCO 10/325 (WATSON LABORATORIES) [Suspect]
     Indication: BACK PAIN
     Dosage: 1 TAB/CAP 10MG HYDROCODONE/325MG ACETAMINOPHEN QID
     Route: 048
     Dates: start: 20030510, end: 20050401
  2. NORCO 10/325 (WATSON LABORATORIES) [Suspect]
     Dosage: 1 TAB/CAP 10MG HYDROCODONE/325MG ACETAMINOPHEN TID
     Route: 048
     Dates: start: 20030411, end: 20030509
  3. AVINZA [Suspect]
     Indication: BACK PAIN
     Dosage: 120 MG, BID
     Route: 048
     Dates: start: 20030802, end: 20050729
  4. AVINZA [Suspect]
     Dosage: 120 MG, DAILY
     Route: 048
     Dates: start: 20030606, end: 20030801
  5. ACTIQ [Suspect]
     Indication: BACK PAIN
     Dosage: 1600 UG, 12 TO 60 LOZENGES EVERY 30 DAYS, PRN
     Route: 002
     Dates: start: 20050826
  6. ACTIQ [Suspect]
     Dosage: 1600 UG, QID
     Route: 002
     Dates: start: 20040401, end: 20050729
  7. ACTIQ [Suspect]
     Dosage: 7200 UG 800 UG ACTIQ/1600 UG ACTIQ QID, PRN, DAILY
     Route: 002
     Dates: start: 20040301, end: 20040401
  8. ACTIQ [Suspect]
     Dosage: 1200 UG, TID
     Route: 002
     Dates: start: 20030802, end: 20040301
  9. ACTIQ [Suspect]
     Dosage: 1200 UG, BID
     Route: 002
     Dates: start: 20030703, end: 20030801
  10. ACTIQ [Suspect]
     Dosage: 600 UG, BID
     Route: 002
     Dates: start: 20030606, end: 20030702
  11. MORPHINE SULFATE [Concomitant]
     Indication: DRUG USE FOR UNKNOWN INDICATION
     Dosage: UNK
     Dates: start: 20060311
  12. MORPHINE SULFATE [Concomitant]
     Dosage: UNK
     Dates: start: 20050826, end: 20060310
  13. MORPHINE SULFATE [Concomitant]
     Dosage: UNK
     Dates: start: 20050528, end: 20050726
  14. MORPHINE SULFATE [Concomitant]
     Dosage: UNK
     Dates: start: 20050401, end: 20050527
  15. METHADON HCL TAB [Concomitant]
     Indication: DRUG USE FOR UNKNOWN INDICATION
     Dosage: UNK
     Dates: start: 20050827
  16. METHADON HCL TAB [Concomitant]
     Dosage: UNK
     Dates: start: 20050729, end: 20050826
  17. DURAGESIC-100 [Concomitant]
     Indication: DRUG USE FOR UNKNOWN INDICATION
     Dosage: UNK
     Dates: start: 20020315, end: 20030606
  18. DURAGESIC-100 [Concomitant]
     Dosage: UNK
     Dates: end: 20020314
  19. OXYCONTIN [Concomitant]
     Indication: DRUG USE FOR UNKNOWN INDICATION
     Dosage: UNK
     Dates: start: 20030129, end: 20030212
  20. VALIUM [Concomitant]
     Indication: DRUG USE FOR UNKNOWN INDICATION
     Dosage: UNK
     Dates: start: 20050827
  21. VALIUM [Concomitant]
     Dosage: UNK
     Dates: start: 20040402, end: 20050826
  22. CYMBALTA [Concomitant]
     Indication: DRUG USE FOR UNKNOWN INDICATION
     Dosage: UNK
     Dates: start: 20060310
  23. CYMBALTA [Concomitant]
     Dosage: UNK
     Dates: start: 20041022, end: 20041101
  24. CYMBALTA [Concomitant]
     Dosage: UNK
     Dates: start: 20041015, end: 20041021
  25. LEXAPRO [Concomitant]
     Indication: DRUG USE FOR UNKNOWN INDICATION
     Dosage: UNK
     Dates: start: 20020315, end: 20040206
  26. LEXAPRO [Concomitant]
     Dosage: UNK
     Dates: end: 20020314
  27. SKELAXIN [Concomitant]
     Indication: DRUG USE FOR UNKNOWN INDICATION
     Dosage: UNK
     Dates: start: 20030129, end: 20040301

REACTIONS (5)
  - CONSTIPATION [None]
  - DENTAL CARIES [None]
  - DRUG ABUSE [None]
  - SEXUAL DYSFUNCTION [None]
  - TOOTH FRACTURE [None]
